FAERS Safety Report 23002025 (Version 2)
Quarter: 2023Q4

REPORT INFORMATION
  Report Type: Spontaneous
  Country: IT (occurrence: IT)
  Receive Date: 20230928
  Receipt Date: 20231009
  Transmission Date: 20240110
  Serious: Yes (Hospitalization, Other)
  Sender: FDA-Public Use
  Company Number: IT-TEVA-2023-IT-2929842

PATIENT
  Age: 1 Day
  Sex: Female

DRUGS (3)
  1. AMIODARONE [Suspect]
     Active Substance: AMIODARONE
     Indication: Supraventricular tachycardia
     Route: 048
  2. FLECAINIDE [Suspect]
     Active Substance: FLECAINIDE
     Indication: Supraventricular tachycardia
     Route: 048
  3. PROPRANOLOL [Suspect]
     Active Substance: PROPRANOLOL HYDROCHLORIDE
     Indication: Supraventricular tachycardia
     Route: 048

REACTIONS (2)
  - Electrocardiogram QRS complex prolonged [Recovered/Resolved]
  - Treatment failure [Unknown]
